FAERS Safety Report 9109400 (Version 2)
Quarter: 2013Q1

REPORT INFORMATION
  Report Type: Report from Study
  Country: ES (occurrence: ES)
  Receive Date: 20130222
  Receipt Date: 20130325
  Transmission Date: 20140127
  Serious: Yes (Other)
  Sender: FDA-Public Use
  Company Number: ES-JNJFOC-20130208542

PATIENT
  Age: 34 Year
  Sex: Male

DRUGS (3)
  1. INTELENCE [Suspect]
     Indication: HIV INFECTION
     Route: 048
     Dates: start: 20091118, end: 20091130
  2. ABACAVIR [Concomitant]
     Indication: HIV INFECTION
     Route: 065
  3. 3TC [Concomitant]
     Indication: HIV INFECTION
     Route: 065

REACTIONS (1)
  - Toxicity to various agents [Unknown]
